FAERS Safety Report 6368061-0 (Version None)
Quarter: 2009Q3

REPORT INFORMATION
  Report Type: 
  Country: None (occurrence: None)
  Receive Date: 20090908
  Receipt Date: 20090826
  Transmission Date: 20100115
  Serious: Yes (Death, Hospitalization)
  Sender: FDA-Public Use
  Company Number: WSDF_00557

PATIENT
  Sex: Male

DRUGS (10)
  1. WINRHO SDF LIQUID [Suspect]
     Indication: IDIOPATHIC THROMBOCYTOPENIC PURPURA
     Dates: start: 20060619, end: 20090619
  2. WINRHO SDF LIQUID [Suspect]
  3. ALLOPURINOL [Concomitant]
  4. PREDNISONE TAB [Concomitant]
  5. PROTONIX [Concomitant]
  6. ATENOLOL [Concomitant]
  7. ENALAPRIL MALEATE [Concomitant]
  8. HYDROCHLOROTHIAZIDE [Concomitant]
  9. ASPIRIN [Concomitant]
  10. NORVASC [Concomitant]

REACTIONS (15)
  - ACUTE RESPIRATORY DISTRESS SYNDROME [None]
  - COOMBS DIRECT TEST POSITIVE [None]
  - DIALYSIS [None]
  - HAEMOLYTIC TRANSFUSION REACTION [None]
  - HYPERCALCAEMIA [None]
  - HYPOXIA [None]
  - INTRAVASCULAR HAEMOLYSIS [None]
  - LEUKAEMIA [None]
  - LUNG INFILTRATION [None]
  - MYOGLOBIN BLOOD INCREASED [None]
  - PULMONARY HAEMORRHAGE [None]
  - PYREXIA [None]
  - RENAL FAILURE [None]
  - RESPIRATORY FAILURE [None]
  - URINARY BLADDER HAEMORRHAGE [None]
